FAERS Safety Report 14668901 (Version 2)
Quarter: 2018Q1

REPORT INFORMATION
  Report Type: Spontaneous
  Country: JP (occurrence: JP)
  Receive Date: 20180322
  Receipt Date: 20180330
  Transmission Date: 20180509
  Serious: Yes (Hospitalization, Other)
  Sender: FDA-Public Use
  Company Number: JP-PFIZER INC-2018114002

PATIENT
  Age: 7 Decade
  Sex: Female

DRUGS (2)
  1. AVASTIN /00848101/ [Suspect]
     Active Substance: SIMVASTATIN
     Indication: BLOOD PRESSURE INCREASED
  2. IBRANCE [Suspect]
     Active Substance: PALBOCICLIB
     Dosage: 125 MG, DAILY
     Route: 048

REACTIONS (1)
  - Renal failure [Recovered/Resolved]
